FAERS Safety Report 23119022 (Version 2)
Quarter: 2023Q4

REPORT INFORMATION
  Report Type: Spontaneous
  Country: US (occurrence: None)
  Receive Date: 20231028
  Receipt Date: 20231213
  Transmission Date: 20240110
  Serious: Yes (Other)
  Sender: FDA-Public Use
  Company Number: 2023A244687

PATIENT
  Sex: Male

DRUGS (1)
  1. CALQUENCE [Suspect]
     Active Substance: ACALABRUTINIB
     Indication: Mantle cell lymphoma
     Route: 048
     Dates: start: 20230121, end: 2023

REACTIONS (4)
  - Platelet count decreased [Unknown]
  - Skin discolouration [Unknown]
  - Peripheral swelling [Unknown]
  - Platelet disorder [Unknown]
